FAERS Safety Report 4986099-2 (Version None)
Quarter: 2006Q2

REPORT INFORMATION
  Report Type: 
  Country: None (occurrence: None)
  Receive Date: 20060428
  Receipt Date: 20060411
  Transmission Date: 20061013
  Serious: Yes (Life-Threatening, Hospitalization)
  Sender: FDA-Public Use
  Company Number: FI-AVENTIS-200613838GDDC

PATIENT
  Age: 58 Year
  Sex: Female

DRUGS (5)
  1. DOCETAXEL [Suspect]
     Indication: BREAST CANCER
     Route: 042
     Dates: start: 20060404, end: 20060404
  2. CAPECITABINE [Suspect]
     Indication: BREAST CANCER
     Dosage: DOSE: 1500 MG
     Route: 048
     Dates: start: 20060404
  3. DEXAMETHASONE [Suspect]
     Dosage: DOSE: 7.5 MG
     Route: 048
     Dates: start: 20060403, end: 20060406
  4. SERETIDE [Concomitant]
  5. DEXAMETHASONE [Concomitant]
     Indication: PROPHYLAXIS
     Dates: start: 20060403, end: 20060406

REACTIONS (2)
  - DIABETIC KETOACIDOSIS [None]
  - WHITE BLOOD CELL COUNT DECREASED [None]
